FAERS Safety Report 7917808-8 (Version None)
Quarter: 2011Q4

REPORT INFORMATION
  Report Type: 
  Country: None (occurrence: None)
  Receive Date: 20111114
  Receipt Date: 20111028
  Transmission Date: 20120403
  Serious: Yes (Hospitalization)
  Sender: FDA-Public Use
  Company Number: 7092307

PATIENT
  Age: 2 Day
  Sex: Female

DRUGS (3)
  1. TRANXENE [Suspect]
     Indication: FOETAL EXPOSURE TIMING UNSPECIFIED
     Route: 064
     Dates: end: 20110517
  2. LEVOTHYROXINE SODIUM [Suspect]
     Indication: FOETAL EXPOSURE TIMING UNSPECIFIED
     Route: 064
     Dates: end: 20110517
  3. PROZAC [Suspect]
     Indication: FOETAL EXPOSURE TIMING UNSPECIFIED
     Route: 064
     Dates: end: 20110517

REACTIONS (11)
  - FOETAL HYPOKINESIA [None]
  - OXYGEN SATURATION DECREASED [None]
  - PREMATURE BABY [None]
  - BRADYCARDIA NEONATAL [None]
  - FOETAL MALNUTRITION [None]
  - HYPOTONIA NEONATAL [None]
  - MATERNAL DRUGS AFFECTING FOETUS [None]
  - MALAISE [None]
  - HYPOCALCAEMIA [None]
  - HYPOGLYCAEMIA NEONATAL [None]
  - CAESAREAN SECTION [None]
